FAERS Safety Report 17257782 (Version 1)
Quarter: 2019Q4

REPORT INFORMATION
  Report Type: Spontaneous
  Country: US (occurrence: US)
  Receive Date: 20191217
  Receipt Date: 20191217
  Transmission Date: 20200122
  Serious: Yes (Hospitalization)
  Sender: FDA-Public Use
  Company Number: None

PATIENT
  Age: 23 Year
  Sex: Male

DRUGS (6)
  1. MUCINEX D [Concomitant]
     Active Substance: GUAIFENESIN\PSEUDOEPHEDRINE HYDROCHLORIDE
  2. AMOXICILLIN. [Concomitant]
     Active Substance: AMOXICILLIN
  3. CLARITIN-D NOS [Concomitant]
     Active Substance: LORATADINE\PSEUDOEPHEDRINE SULFATE
  4. METHYPRED [Concomitant]
  5. HUMIRA [Suspect]
     Active Substance: ADALIMUMAB
     Indication: CROHN^S DISEASE
     Dosage: ?          OTHER DOSE:40MG/0.4ML PER (20;OTHER FREQUENCY:1X/EVERY 2 WEEK;?
     Route: 058
     Dates: start: 20190219
  6. AMOX/X CLAV [Concomitant]

REACTIONS (1)
  - Condition aggravated [None]

NARRATIVE: CASE EVENT DATE: 20191212
